FAERS Safety Report 16138327 (Version 1)
Quarter: 2019Q1

REPORT INFORMATION
  Report Type: Spontaneous
  Country: IT (occurrence: IT)
  Receive Date: 20190330
  Receipt Date: 20190330
  Transmission Date: 20190418
  Serious: Yes (Other)
  Sender: FDA-Public Use
  Company Number: IT-ACCORD-117001

PATIENT
  Age: 53 Year
  Sex: Female
  Weight: 66 kg

DRUGS (1)
  1. PACLITAXEL ACCORD HEALTHCARE [Suspect]
     Active Substance: PACLITAXEL
     Indication: BREAST CANCER
     Dosage: STRENGTH:6 MG / ML
     Route: 042
     Dates: start: 20181107, end: 20181227

REACTIONS (2)
  - Neutropenia [Unknown]
  - Nasal dryness [Unknown]

NARRATIVE: CASE EVENT DATE: 20190108
